FAERS Safety Report 23341197 (Version 3)
Quarter: 2024Q2

REPORT INFORMATION
  Report Type: Spontaneous
  Country: VE (occurrence: VE)
  Receive Date: 20231227
  Receipt Date: 20240627
  Transmission Date: 20240716
  Serious: Yes (Death, Life-Threatening, Hospitalization)
  Sender: FDA-Public Use
  Company Number: VE-ROCHE-3480163

PATIENT
  Age: 61 Year
  Sex: Male

DRUGS (4)
  1. AVASTIN [Suspect]
     Active Substance: BEVACIZUMAB
     Indication: Adenocarcinoma of colon
     Dosage: SUBSEQUENT DOSE TAKEN ON - OCT-2023 AND 19-DEC-2023
     Route: 065
     Dates: start: 202305
  2. ATEZOLIZUMAB [Suspect]
     Active Substance: ATEZOLIZUMAB
     Indication: Adenocarcinoma of colon
     Route: 065
     Dates: start: 202310, end: 202312
  3. FLUOROURACIL\LEUCOVORIN CALCIUM\OXALIPLATIN [Concomitant]
     Active Substance: FLUOROURACIL\LEUCOVORIN CALCIUM\OXALIPLATIN
     Indication: Adenocarcinoma of colon
     Route: 065
     Dates: start: 202309, end: 202312
  4. FLUOROURACIL\LEUCOVORIN CALCIUM\OXALIPLATIN [Concomitant]
     Active Substance: FLUOROURACIL\LEUCOVORIN CALCIUM\OXALIPLATIN
     Route: 065
     Dates: start: 202304, end: 202307

REACTIONS (10)
  - Depressed level of consciousness [Unknown]
  - Platelet count decreased [Unknown]
  - Hypotension [Unknown]
  - Intracranial pressure increased [Fatal]
  - Chills [Recovered/Resolved]
  - Headache [Unknown]
  - Fall [Unknown]
  - Cardio-respiratory arrest [Recovered/Resolved]
  - Brain herniation [Fatal]
  - Haemorrhagic stroke [Fatal]

NARRATIVE: CASE EVENT DATE: 20231219
